FAERS Safety Report 4906310-3 (Version None)
Quarter: 2006Q1

REPORT INFORMATION
  Report Type: 
  Country: None (occurrence: None)
  Receive Date: 20060209
  Receipt Date: 20060131
  Transmission Date: 20060701
  Serious: Yes (Life-Threatening, Hospitalization, Disabling)
  Sender: FDA-Public Use
  Company Number: US-JNJFOC-20060102486

PATIENT
  Age: 47 Year
  Sex: Male
  Weight: 58.06 kg

DRUGS (9)
  1. REMICADE [Suspect]
     Indication: CROHN'S DISEASE
     Route: 042
  2. BUDESONIDE [Concomitant]
     Dosage: DURATION = SIX MONTHS
  3. ASACOL [Concomitant]
     Indication: CROHN'S DISEASE
     Dosage: DURATION = ^FOR YEARS^
  4. IMURAN [Concomitant]
  5. CHOLESTYRAMINE [Concomitant]
     Dosage: DURATION= ^YEARS^
  6. AMITRIPTYLINE HCL [Concomitant]
     Indication: DEPRESSION
  7. AMITRIPTYLINE HCL [Concomitant]
     Indication: PAIN
  8. AMITRIPTYLINE HCL [Concomitant]
     Dosage: DURATION = ^YEARS^
  9. METHOTREXATE [Concomitant]

REACTIONS (2)
  - HYDROTHORAX [None]
  - PANCREATITIS ACUTE [None]
